FAERS Safety Report 14988977 (Version 3)
Quarter: 2018Q3

REPORT INFORMATION
  Report Type: Report from Study
  Country: None (occurrence: US)
  Receive Date: 20180608
  Receipt Date: 20180816
  Transmission Date: 20181010
  Serious: Yes (Hospitalization, Other)
  Sender: FDA-Public Use
  Company Number: US-ABBVIE-18K-163-2381223-00

PATIENT
  Age: 72 Year
  Sex: Male
  Weight: 113.5 kg

DRUGS (2)
  1. HUMIRA [Suspect]
     Active Substance: ADALIMUMAB
     Route: 058
     Dates: start: 201807
  2. HUMIRA [Suspect]
     Active Substance: ADALIMUMAB
     Indication: PSORIASIS
     Route: 058
     Dates: start: 2016, end: 201708

REACTIONS (7)
  - Fall [Not Recovered/Not Resolved]
  - Cyst [Recovering/Resolving]
  - Scoliosis [Not Recovered/Not Resolved]
  - Urinary tract infection [Recovered/Resolved]
  - Joint instability [Not Recovered/Not Resolved]
  - Spinal osteoarthritis [Recovering/Resolving]
  - Procedural pain [Recovering/Resolving]

NARRATIVE: CASE EVENT DATE: 2018
